FAERS Safety Report 26202208 (Version 1)
Quarter: 2025Q4

REPORT INFORMATION
  Report Type: Spontaneous
  Country: GB (occurrence: GB)
  Receive Date: 20251226
  Receipt Date: 20251226
  Transmission Date: 20260117
  Serious: Yes (Life-Threatening, Other)
  Sender: MSN LABORATORIES PRIVATE LIMITED
  Company Number: GB-MSNLABS-2025MSNLIT03994

PATIENT

DRUGS (4)
  1. PACLITAXEL [Suspect]
     Active Substance: PACLITAXEL
     Indication: Ovarian epithelial cancer
     Dosage: 6 CYCLES ADMINISTERED ON DAY 1 OF A 21-DAY CYCLE
     Route: 065
  2. CARBOPLATIN [Suspect]
     Active Substance: CARBOPLATIN
     Indication: Ovarian epithelial cancer
     Dosage: 6 CYCLES ADMINISTERED ON DAY 1 OF A 21- DAY CYCLE
     Route: 065
  3. DEXAMETHASONE [Concomitant]
     Active Substance: DEXAMETHASONE
     Indication: Premedication
     Dosage: CYCLE 1
     Route: 065
  4. DEXAMETHASONE [Concomitant]
     Active Substance: DEXAMETHASONE
     Dosage: AFTER CYCLE 1
     Route: 065

REACTIONS (4)
  - Hyperkalaemia [Unknown]
  - Anti-glomerular basement membrane disease [Recovering/Resolving]
  - Renal failure [Not Recovered/Not Resolved]
  - Metabolic acidosis [Unknown]
